FAERS Safety Report 21547501 (Version 1)
Quarter: 2022Q4

REPORT INFORMATION
  Report Type: Spontaneous
  Country: US (occurrence: None)
  Receive Date: 20221102
  Receipt Date: 20221102
  Transmission Date: 20230112
  Serious: Yes (Hospitalization)
  Sender: FDA-Public Use
  Company Number: None

PATIENT
  Age: 70 Year
  Sex: Female
  Weight: 74.3 kg

DRUGS (3)
  1. CYTARABINE [Suspect]
     Active Substance: CYTARABINE
     Dates: end: 20221021
  2. SPRYCEL [Suspect]
     Active Substance: DASATINIB
     Dates: end: 20221022
  3. METHOTREXATE [Suspect]
     Active Substance: METHOTREXATE
     Dates: end: 20221019

REACTIONS (2)
  - Diarrhoea [None]
  - Clostridium bacteraemia [None]

NARRATIVE: CASE EVENT DATE: 20221022
